FAERS Safety Report 26179991 (Version 1)
Quarter: 2025Q4

REPORT INFORMATION
  Report Type: Spontaneous
  Country: GB (occurrence: GB)
  Receive Date: 20251219
  Receipt Date: 20251219
  Transmission Date: 20260117
  Serious: Yes (Other)
  Sender: MYLAN
  Company Number: None

PATIENT
  Age: 57 Year
  Sex: Female
  Weight: 93 kg

DRUGS (4)
  1. MIRTAZAPINE [Suspect]
     Active Substance: MIRTAZAPINE
     Indication: Depression
     Dosage: 15 MILLIGRAM
     Dates: start: 20251213, end: 20251215
  2. MIRTAZAPINE [Suspect]
     Active Substance: MIRTAZAPINE
     Dosage: 15 MILLIGRAM
     Route: 065
     Dates: start: 20251213, end: 20251215
  3. MIRTAZAPINE [Suspect]
     Active Substance: MIRTAZAPINE
     Dosage: 15 MILLIGRAM
     Route: 065
     Dates: start: 20251213, end: 20251215
  4. MIRTAZAPINE [Suspect]
     Active Substance: MIRTAZAPINE
     Dosage: 15 MILLIGRAM
     Dates: start: 20251213, end: 20251215

REACTIONS (1)
  - Loss of consciousness [Recovered/Resolved]

NARRATIVE: CASE EVENT DATE: 20251215
